FAERS Safety Report 6849121-4 (Version None)
Quarter: 2010Q3

REPORT INFORMATION
  Report Type: 
  Country: None (occurrence: None)
  Receive Date: 20100716
  Receipt Date: 20100702
  Transmission Date: 20110219
  Serious: Yes (Other)
  Sender: FDA-Public Use
  Company Number: PHHY2010US33304

PATIENT
  Sex: Female

DRUGS (17)
  1. GLEEVEC [Suspect]
     Indication: CHRONIC MYELOID LEUKAEMIA
     Dosage: 400 MG, DAILY
     Route: 048
  2. GLEEVEC [Suspect]
     Dosage: 200 MG DAILY
     Route: 048
     Dates: start: 20080501
  3. GLEEVEC [Suspect]
     Dosage: 200 MG, DAILY
     Route: 048
     Dates: start: 20090507
  4. ENABLEX [Concomitant]
     Dosage: UNK
     Route: 048
     Dates: start: 20090901
  5. POTASSIUM CHLORATE [Concomitant]
     Dosage: UNK
     Route: 048
     Dates: start: 20090901
  6. LOPERAMIDE [Concomitant]
     Dosage: 2 MG, PRN
     Route: 048
     Dates: start: 20090901
  7. DIPHENHYDRAMINE [Concomitant]
     Dosage: 25 MG, PRN
     Dates: start: 20090501
  8. RANITIDINE HCL [Concomitant]
     Dosage: 150 MG
     Route: 048
     Dates: start: 20090601
  9. ROPINIROLE [Concomitant]
     Dosage: 150 MG, BID
     Route: 048
     Dates: start: 20090601
  10. DILTIAZEM [Concomitant]
     Dosage: 120 MG
     Route: 048
     Dates: start: 20090501
  11. DOXAZOSIN [Concomitant]
     Dosage: 02 MG
     Route: 048
     Dates: start: 20090501
  12. ATORVASTATIN [Concomitant]
     Dosage: 10 MG
     Route: 048
     Dates: start: 20090501
  13. CYANOCOBALAMIN [Concomitant]
     Dosage: UNK
     Route: 030
     Dates: start: 20091201
  14. ERGOCALCIFEROL [Concomitant]
     Dosage: UNK
     Route: 048
  15. CALCIUM CARBONATE [Concomitant]
     Dosage: 300 MG , DAILY
     Route: 048
  16. FOLIC ACID [Concomitant]
     Dosage: 1 MG, QD
     Dates: start: 20091201
  17. RISEDRONATE SODIUM [Concomitant]
     Dosage: UNK
     Route: 048
     Dates: start: 20090506

REACTIONS (4)
  - DIARRHOEA [None]
  - IRRITABLE BOWEL SYNDROME [None]
  - MUSCLE SPASMS [None]
  - PLATELET COUNT DECREASED [None]
